FAERS Safety Report 9548698 (Version 2)
Quarter: 2013Q4

REPORT INFORMATION
  Report Type: Spontaneous
  Country: GB (occurrence: None)
  Receive Date: 20130919
  Receipt Date: 20131209
  Transmission Date: 20140711
  Serious: Yes (Death, Hospitalization, Other)
  Sender: FDA-Public Use
  Company Number: 1900260

PATIENT
  Age: 54 Year
  Sex: Female
  Weight: 230 kg

DRUGS (16)
  1. MEROPENEM [Suspect]
     Indication: CELLULITIS
     Route: 042
     Dates: start: 20130812, end: 20130820
  2. DALTEPARIN SODIUM [Concomitant]
  3. GLICLAZIDE [Concomitant]
  4. SIMVASTATIN [Concomitant]
  5. METFORMIN [Concomitant]
  6. RAMIPRIL [Concomitant]
  7. LEVOTHYROXINE SODIUM [Concomitant]
  8. CLINDAMYCIN [Concomitant]
  9. PARACETAMOL [Concomitant]
  10. GENTAMICIN SULPHATE [Concomitant]
  11. VANCOMYCIN [Concomitant]
  12. INSULIN HUMAN [Concomitant]
  13. HUMAN INSULIN MIX [Concomitant]
  14. CALCIUM POLYSTYRENE SULFONATE [Concomitant]
  15. CODEINE [Concomitant]
  16. FUROSEMIDE [Concomitant]

REACTIONS (7)
  - Renal failure acute [None]
  - Renal failure acute [None]
  - Tubulointerstitial nephritis [None]
  - Drug hypersensitivity [None]
  - Respiratory failure [None]
  - Respiratory acidosis [None]
  - Metabolic acidosis [None]
